FAERS Safety Report 11450711 (Version 1)
Quarter: 2015Q3

REPORT INFORMATION
  Report Type: Spontaneous
  Country: US (occurrence: None)
  Receive Date: 20150902
  Receipt Date: 20150902
  Transmission Date: 20151125
  Serious: No
  Sender: FDA-Public Use
  Company Number: None

PATIENT
  Age: 62 Year
  Sex: Female
  Weight: 88.45 kg

DRUGS (7)
  1. VAGIFEM [Concomitant]
     Active Substance: ESTRADIOL
  2. CENTUM SILVER MULTIVITAMINS [Concomitant]
  3. ESTRADIOL. [Concomitant]
     Active Substance: ESTRADIOL
  4. PROTONIX [Suspect]
     Active Substance: PANTOPRAZOLE SODIUM
     Indication: DRUG THERAPY
     Dosage: 1 PILL
     Route: 048
     Dates: start: 20141201, end: 20150501
  5. BYSTOLIC [Concomitant]
     Active Substance: NEBIVOLOL HYDROCHLORIDE
  6. CRESTOR [Concomitant]
     Active Substance: ROSUVASTATIN CALCIUM
  7. CITRACAL [Concomitant]
     Active Substance: CALCIUM CITRATE

REACTIONS (7)
  - Abdominal distension [None]
  - Abdominal pain [None]
  - Diarrhoea [None]
  - Impaired gastric emptying [None]
  - Vibratory sense increased [None]
  - Dyspepsia [None]
  - Regurgitation [None]

NARRATIVE: CASE EVENT DATE: 20150306
